FAERS Safety Report 9779875 (Version 2)
Quarter: 2013Q4

REPORT INFORMATION
  Report Type: Report from Study
  Country: US (occurrence: US)
  Receive Date: 20131223
  Receipt Date: 20131223
  Transmission Date: 20140711
  Serious: Yes (Death, Hospitalization)
  Sender: FDA-Public Use
  Company Number: US-009507513-1208USA005250

PATIENT
  Age: 5 Year
  Sex: Male
  Weight: 29.2 kg

DRUGS (4)
  1. VORINOSTAT [Suspect]
     Indication: BRAIN STEM GLIOMA
     Dosage: CYCLE 1: 230 MG/M2/DOSE ON DAYS 1-5 WEEKLY
     Route: 048
     Dates: start: 20120709, end: 20120713
  2. VORINOSTAT [Suspect]
     Dosage: CYCLE 1: 180 MG/M2
     Route: 048
     Dates: start: 20120812, end: 20120812
  3. VORINOSTAT [Suspect]
     Dosage: 230 MG/M2/DOSE ON DAYS 1-5 WEEKLY
     Route: 048
     Dates: start: 20130618, end: 20130622
  4. HEXADROL TABLETS [Suspect]
     Indication: BRAIN STEM GLIOMA

REACTIONS (2)
  - Embolism [Recovered/Resolved]
  - Death [Fatal]
